FAERS Safety Report 9121419 (Version 2)
Quarter: 2020Q3

REPORT INFORMATION
  Report Type: Report from Study
  Country: US (occurrence: US)
  Receive Date: 20130225
  Receipt Date: 20130301
  Transmission Date: 20201104
  Serious: Yes (Hospitalization)
  Sender: FDA-Public Use
  Company Number: US-ROCHE-1191577

PATIENT
  Age: 60 Year
  Sex: Female
  Weight: 49.4 kg

DRUGS (5)
  1. DECADRON [Concomitant]
     Active Substance: DEXAMETHASONE
     Route: 065
     Dates: start: 20130215
  2. ZANTAC [Concomitant]
     Active Substance: RANITIDINE HYDROCHLORIDE
     Route: 065
     Dates: start: 20130215
  3. ONDANSETRON [Concomitant]
     Active Substance: ONDANSETRON
     Route: 065
     Dates: start: 20111013
  4. BEVACIZUMAB. [Suspect]
     Active Substance: BEVACIZUMAB
     Indication: GLIOBLASTOMA
     Dosage: DATE OF MOST RECENT DOSE OF BEVACIZUMAB PRIOR TO AE 04/FEB/2013
     Route: 042
     Dates: start: 20130114
  5. ONARTUZUMAB. [Suspect]
     Active Substance: ONARTUZUMAB
     Indication: GLIOBLASTOMA
     Dosage: DATE OF MOST RECENT DOSE OF BLINDED ONARTUZUMAB PRIOR TO AE 04/FEB/2013
     Route: 042
     Dates: start: 20130114

REACTIONS (1)
  - Seizure [Recovered/Resolved]

NARRATIVE: CASE EVENT DATE: 20130212
